FAERS Safety Report 5373559-8 (Version None)
Quarter: 2007Q2

REPORT INFORMATION
  Report Type: 
  Country: None (occurrence: None)
  Receive Date: 20070628
  Receipt Date: 20070622
  Transmission Date: 20071010
  Serious: Yes (Death, Other)
  Sender: FDA-Public Use
  Company Number: B0477084A

PATIENT
  Age: 75 Year
  Sex: Female

DRUGS (1)
  1. AUGMENTIN '125' [Suspect]
     Indication: LOBAR PNEUMONIA
     Dosage: 3G PER DAY
     Route: 050
     Dates: start: 20070607, end: 20070614

REACTIONS (6)
  - HEPATORENAL SYNDROME [None]
  - HYPOGLYCAEMIC COMA [None]
  - JAUNDICE [None]
  - LIVER FUNCTION TEST ABNORMAL [None]
  - LIVER TENDERNESS [None]
  - RENAL IMPAIRMENT [None]
